FAERS Safety Report 5523536-9 (Version None)
Quarter: 2007Q4

REPORT INFORMATION
  Report Type: 
  Country: None (occurrence: None)
  Receive Date: 20071121
  Receipt Date: 20071113
  Transmission Date: 20080405
  Serious: Yes (Hospitalization)
  Sender: FDA-Public Use
  Company Number: US-JNJFOC-20071105220

PATIENT
  Age: 68 Year
  Sex: Female

DRUGS (4)
  1. RISPERDAL CONSTA [Suspect]
     Indication: SCHIZOPHRENIA
     Route: 030
  2. RISPERDAL [Suspect]
     Indication: DELIRIUM
     Route: 048
  3. ATIVAN [Concomitant]
     Indication: INSOMNIA
  4. MORPHINE [Concomitant]
     Indication: NEOPLASM MALIGNANT

REACTIONS (5)
  - ALCOHOLISM [None]
  - CONSTIPATION [None]
  - MUSCLE SPASMS [None]
  - MUSCULOSKELETAL STIFFNESS [None]
  - URINARY RETENTION [None]
